FAERS Safety Report 23908406 (Version 1)
Quarter: 2024Q2

REPORT INFORMATION
  Report Type: Report from Study
  Country: US (occurrence: US)
  Receive Date: 20240528
  Receipt Date: 20240528
  Transmission Date: 20240716
  Serious: Yes (Hospitalization)
  Sender: FDA-Public Use
  Company Number: US-ABBVIE-5696242

PATIENT
  Age: 29 Year
  Sex: Female

DRUGS (7)
  1. SKYRIZI [Suspect]
     Active Substance: RISANKIZUMAB-RZAA
     Indication: Crohn^s disease
     Dosage: FORM STRENGTH: 360 MG
     Route: 058
     Dates: start: 202312
  2. SKYRIZI [Suspect]
     Active Substance: RISANKIZUMAB-RZAA
     Dosage: FORM STRENGTH: 360 MG
     Route: 058
     Dates: start: 202402
  3. BENADRYL [Concomitant]
     Active Substance: DIPHENHYDRAMINE HYDROCHLORIDE
     Indication: Urticaria
  4. KEFLEX [Concomitant]
     Active Substance: CEPHALEXIN
     Indication: Cellulitis
     Dates: start: 20240325
  5. SKYRIZI [Suspect]
     Active Substance: RISANKIZUMAB-RZAA
     Indication: Crohn^s disease
     Dosage: FORM STRENGTH: 600MG?WEEK 0
     Route: 042
     Dates: start: 202308, end: 202308
  6. SKYRIZI [Suspect]
     Active Substance: RISANKIZUMAB-RZAA
     Indication: Crohn^s disease
     Dosage: FORM STRENGTH: 600MG?WEEK 4
     Route: 042
     Dates: start: 202310, end: 202310
  7. SKYRIZI [Suspect]
     Active Substance: RISANKIZUMAB-RZAA
     Indication: Crohn^s disease
     Dosage: FORM STRENGTH: 600MG?WEEK 8
     Route: 042
     Dates: start: 202311, end: 202311

REACTIONS (11)
  - Small intestinal obstruction [Recovered/Resolved]
  - Injection site pruritus [Recovered/Resolved with Sequelae]
  - Arthralgia [Recovered/Resolved]
  - Injection site discolouration [Recovered/Resolved with Sequelae]
  - Injection site warmth [Recovered/Resolved with Sequelae]
  - Injection site swelling [Recovered/Resolved with Sequelae]
  - Injection site erythema [Recovered/Resolved with Sequelae]
  - Off label use [Recovering/Resolving]
  - Inflammation [Recovering/Resolving]
  - Injection site induration [Recovered/Resolved with Sequelae]
  - Injection site pustule [Recovered/Resolved with Sequelae]

NARRATIVE: CASE EVENT DATE: 20230901
